FAERS Safety Report 11421140 (Version 3)
Quarter: 2016Q1

REPORT INFORMATION
  Report Type: Spontaneous
  Country: US (occurrence: US)
  Receive Date: 20150826
  Receipt Date: 20160107
  Transmission Date: 20160525
  Serious: Yes (Other)
  Sender: FDA-Public Use
  Company Number: US-GLAXOSMITHKLINE-US2015GSK121873

PATIENT
  Age: 88 Year
  Sex: Female

DRUGS (2)
  1. ADVAIR DISKUS [Suspect]
     Active Substance: FLUTICASONE PROPIONATE\SALMETEROL XINAFOATE
     Dosage: 100 UG, UNK
     Route: 055
  2. ADVAIR DISKUS [Suspect]
     Active Substance: FLUTICASONE PROPIONATE\SALMETEROL XINAFOATE
     Indication: ASTHMA
     Dosage: 100 UG, UNK
     Route: 055

REACTIONS (4)
  - Cataract [Unknown]
  - Cataract operation [Unknown]
  - Glaucoma [Unknown]
  - Blindness unilateral [Unknown]

NARRATIVE: CASE EVENT DATE: 201506
